FAERS Safety Report 4393958-0 (Version None)
Quarter: 2004Q3

REPORT INFORMATION
  Report Type: 
  Country: None (occurrence: None)
  Receive Date: 20040701
  Receipt Date: 20040614
  Transmission Date: 20050211
  Serious: Yes (Death, Life-Threatening, Hospitalization, Other)
  Sender: FDA-Public Use
  Company Number: 04-231-0768

PATIENT
  Sex: Female
  Weight: 50 kg

DRUGS (1)
  1. DAUNORUBICIN, UNKNOWN STRENGTH, BEN VENUE LABS [Suspect]
     Indication: ACUTE MYELOID LEUKAEMIA
     Dosage: 180 MG
     Dates: start: 20040409

REACTIONS (2)
  - CEREBRAL ISCHAEMIA [None]
  - SEPSIS [None]
